FAERS Safety Report 7531325-9 (Version None)
Quarter: 2011Q2

REPORT INFORMATION
  Report Type: 
  Country: None (occurrence: None)
  Receive Date: 20110606
  Receipt Date: 20110606
  Transmission Date: 20111010
  Serious: Yes (Other)
  Sender: FDA-Public Use
  Company Number: None

PATIENT
  Sex: Male
  Weight: 158.759 kg

DRUGS (1)
  1. METOPROLOL TARTRATE [Suspect]
     Indication: DIABETES MELLITUS
     Dosage: 50MG BID
     Dates: start: 20110421, end: 20110514

REACTIONS (5)
  - HEADACHE [None]
  - PRODUCT QUALITY ISSUE [None]
  - VOMITING [None]
  - MALAISE [None]
  - DIZZINESS [None]
